FAERS Safety Report 12993935 (Version 1)
Quarter: 2016Q4

REPORT INFORMATION
  Report Type: Spontaneous
  Country: US (occurrence: US)
  Receive Date: 20161202
  Receipt Date: 20161202
  Transmission Date: 20170207
  Serious: Yes (Other)
  Sender: FDA-Public Use
  Company Number: US-PFIZER INC-2016550238

PATIENT
  Age: 29 Year
  Sex: Female
  Weight: 60.78 kg

DRUGS (1)
  1. CHANTIX [Suspect]
     Active Substance: VARENICLINE TARTRATE
     Indication: SMOKING CESSATION THERAPY
     Dosage: UNK
     Route: 048
     Dates: start: 201405, end: 201406

REACTIONS (12)
  - Mania [Unknown]
  - Hallucination [Recovered/Resolved]
  - Anxiety [Recovering/Resolving]
  - Panic reaction [Recovering/Resolving]
  - Mood swings [Recovering/Resolving]
  - Thinking abnormal [Unknown]
  - Mental disorder [Recovering/Resolving]
  - Paranoia [Recovering/Resolving]
  - Nightmare [Recovering/Resolving]
  - Ill-defined disorder [Recovering/Resolving]
  - Agitation [Unknown]
  - Aggression [Recovering/Resolving]

NARRATIVE: CASE EVENT DATE: 201406
